FAERS Safety Report 7709729-0 (Version None)
Quarter: 2011Q3

REPORT INFORMATION
  Report Type: 
  Country: None (occurrence: None)
  Receive Date: 20110819
  Receipt Date: 20110811
  Transmission Date: 20111222
  Serious: Yes (Death)
  Sender: FDA-Public Use
  Company Number: 1011210

PATIENT
  Age: 22 Month
  Sex: Male

DRUGS (6)
  1. FLUDARABINE PHOSPHATE [Suspect]
     Indication: BONE MARROW CONDITIONING REGIMEN
  2. DEFEROXAMIDE IRON OVERLOAD (IRON OVERLOAD) [Concomitant]
  3. BUSULFAN [Suspect]
     Indication: BONE MARROW CONDITIONING REGIMEN
  4. CAMPATH [Suspect]
     Indication: BONE MARROW CONDITIONING REGIMEN
  5. PLATELETS [Concomitant]
  6. RED BLOOD CELLS [Concomitant]

REACTIONS (10)
  - PULMONARY ALVEOLAR HAEMORRHAGE [None]
  - BONE MARROW TRANSPLANT REJECTION [None]
  - RESPIRATORY FAILURE [None]
  - STEM CELL TRANSPLANT [None]
  - BONE MARROW FAILURE [None]
  - TRANSPLANT REJECTION [None]
  - SURGICAL PROCEDURE REPEATED [None]
  - CELLULITIS [None]
  - BONE MARROW TRANSPLANT [None]
  - STENOTROPHOMONAS INFECTION [None]
